FAERS Safety Report 14787795 (Version 2)
Quarter: 2018Q2

REPORT INFORMATION
  Report Type: Spontaneous
  Country: US (occurrence: US)
  Receive Date: 20180422
  Receipt Date: 20180531
  Transmission Date: 20180711
  Serious: No
  Sender: FDA-Public Use
  Company Number: US-ASTRAZENECA-2018SE37395

PATIENT
  Sex: Female

DRUGS (2)
  1. SYMBICORT [Suspect]
     Active Substance: BUDESONIDE\FORMOTEROL FUMARATE DIHYDRATE
     Dosage: 160/4.5 MCG TWO PUFFS TWICE A DAY
     Route: 055
  2. SYMBICORT [Suspect]
     Active Substance: BUDESONIDE\FORMOTEROL FUMARATE DIHYDRATE
     Dosage: TRIED THIRD PUFF, UNKNOWN UNKNOWN
     Route: 055

REACTIONS (8)
  - Confusional state [Unknown]
  - Emotional disorder [Unknown]
  - Intentional product misuse [Unknown]
  - Device issue [Unknown]
  - Nervousness [Unknown]
  - Drug dose omission [Unknown]
  - Dyspnoea [Unknown]
  - Visual impairment [Unknown]
